FAERS Safety Report 6436780-3 (Version None)
Quarter: 2009Q4

REPORT INFORMATION
  Report Type: 
  Country: None (occurrence: None)
  Receive Date: 20091103
  Receipt Date: 20091016
  Transmission Date: 20100525
  Serious: Yes (Hospitalization)
  Sender: FDA-Public Use
  Company Number: GAM-149-09-AU

PATIENT
  Age: 41 Year
  Sex: Male
  Weight: 93 kg

DRUGS (2)
  1. OCTAGAM [Suspect]
     Indication: KIDNEY TRANSPLANT REJECTION
     Dosage: 90 G I.V.
     Route: 042
     Dates: start: 20080503, end: 20080503
  2. OCTAGAM 5 %IIIIIIIII (HUMAN NORMAL IMMUNOGLOBULIN) [Suspect]
     Route: 042

REACTIONS (3)
  - ARTERIOVENOUS FISTULA THROMBOSIS [None]
  - PAIN [None]
  - SWELLING [None]
